FAERS Safety Report 16934845 (Version 1)
Quarter: 2019Q4

REPORT INFORMATION
  Report Type: Spontaneous
  Country: US (occurrence: US)
  Receive Date: 20191017
  Receipt Date: 20191017
  Transmission Date: 20200122
  Serious: Yes (Other)
  Sender: FDA-Public Use
  Company Number: None

PATIENT
  Age: 31 Year
  Sex: Female
  Weight: 58.97 kg

DRUGS (1)
  1. ETONOGESTREL IMPLANT [Suspect]
     Active Substance: ETONOGESTREL

REACTIONS (5)
  - Haemorrhage [None]
  - Headache [None]
  - Vaginal haemorrhage [None]
  - Abdominal pain [None]
  - Mood swings [None]

NARRATIVE: CASE EVENT DATE: 20190826
